FAERS Safety Report 12432735 (Version 4)
Quarter: 2017Q1

REPORT INFORMATION
  Report Type: Report from Study
  Country: DE (occurrence: DE)
  Receive Date: 20160603
  Receipt Date: 20170223
  Transmission Date: 20170428
  Serious: Yes (Other)
  Sender: FDA-Public Use
  Company Number: PHHY2016DE049394

PATIENT
  Age: 76 Year
  Sex: Male
  Weight: 82 kg

DRUGS (16)
  1. EXJADE [Suspect]
     Active Substance: DEFERASIROX
     Dosage: 17.8 MG/KG, (3 DF OF 500 MG)
     Route: 048
     Dates: start: 20160730, end: 20161128
  2. EXJADE [Suspect]
     Active Substance: DEFERASIROX
     Dosage: 5.88 MG, 50 MG, 1 DF QD
     Route: 048
     Dates: start: 20161129
  3. ASPIRIN. [Concomitant]
     Active Substance: ASPIRIN
     Indication: PRODUCT USED FOR UNKNOWN INDICATION
     Dosage: 100 MG, QD
     Route: 065
  4. CEFTRIAXON [Concomitant]
     Active Substance: CEFTRIAXONE
     Indication: PRODUCT USED FOR UNKNOWN INDICATION
     Dosage: UNK
     Route: 065
     Dates: start: 20151207, end: 20151215
  5. ACTRAPID [Concomitant]
     Active Substance: INSULIN HUMAN
     Indication: PRODUCT USED FOR UNKNOWN INDICATION
     Dosage: UNK
     Route: 065
  6. VERTIGOHEEL [Concomitant]
     Active Substance: HOMEOPATHICS
     Indication: PRODUCT USED FOR UNKNOWN INDICATION
     Dosage: UNK
     Route: 065
  7. REVOLADE [Concomitant]
     Active Substance: ELTROMBOPAG
     Indication: PRODUCT USED FOR UNKNOWN INDICATION
     Dosage: 50 MG, QD
     Route: 065
     Dates: start: 20160113
  8. EXJADE [Suspect]
     Active Substance: DEFERASIROX
     Dosage: 12 MG/KG, 500 MG, 2 DF QD
     Route: 048
     Dates: start: 20160405, end: 20160729
  9. ENDOXAN [Concomitant]
     Active Substance: CYCLOPHOSPHAMIDE
     Indication: PRODUCT USED FOR UNKNOWN INDICATION
     Dosage: 100 MG, BID
     Route: 065
     Dates: start: 20150810, end: 201510
  10. EXJADE [Suspect]
     Active Substance: DEFERASIROX
     Indication: REFRACTORY ANAEMIA WITH AN EXCESS OF BLASTS
     Dosage: 6.09 MG/KG, 500 MG, QD
     Route: 048
     Dates: start: 20151014, end: 20160404
  11. LANTUS [Concomitant]
     Active Substance: INSULIN GLARGINE
     Indication: PRODUCT USED FOR UNKNOWN INDICATION
     Dosage: 6 IE/ DAY, 1 X EVENING
     Route: 065
  12. MONURIL [Concomitant]
     Active Substance: FOSFOMYCIN SODIUM
     Indication: PRODUCT USED FOR UNKNOWN INDICATION
     Dosage: 3 G, QD
     Route: 065
     Dates: start: 20160714, end: 20160714
  13. ALLOPURINOL. [Concomitant]
     Active Substance: ALLOPURINOL
     Indication: PRODUCT USED FOR UNKNOWN INDICATION
     Dosage: 100 MG, QD
     Route: 065
  14. VALSARTAN. [Concomitant]
     Active Substance: VALSARTAN
     Indication: PRODUCT USED FOR UNKNOWN INDICATION
     Dosage: 80 MG, QD
     Route: 065
  15. SIMVASTATIN. [Concomitant]
     Active Substance: SIMVASTATIN
     Indication: PRODUCT USED FOR UNKNOWN INDICATION
     Dosage: 40 MG, QD
     Route: 065
  16. MONURIL [Concomitant]
     Active Substance: FOSFOMYCIN SODIUM
     Dosage: 3 G, QD
     Route: 065
     Dates: start: 20161025, end: 20161025

REACTIONS (9)
  - Haemoglobin decreased [Recovered/Resolved]
  - Anaemia [Unknown]
  - Haemoglobin decreased [Recovered/Resolved]
  - Fatigue [Unknown]
  - Leukopenia [Unknown]
  - Haemoglobin decreased [Recovered/Resolved]
  - Thrombocytopenia [Recovered/Resolved]
  - Haemoglobin decreased [Recovered/Resolved]
  - Haemoglobin decreased [Recovered/Resolved]

NARRATIVE: CASE EVENT DATE: 20151026
